FAERS Safety Report 10349411 (Version 1)
Quarter: 2014Q3

REPORT INFORMATION
  Report Type: Spontaneous
  Country: CA (occurrence: CA)
  Receive Date: 20140730
  Receipt Date: 20140730
  Transmission Date: 20150326
  Serious: Yes (Other)
  Sender: FDA-Public Use
  Company Number: CA-ASTRAZENECA-2014SE53527

PATIENT
  Sex: Female

DRUGS (22)
  1. CRESTOR [Concomitant]
     Active Substance: ROSUVASTATIN CALCIUM
  2. ELTROXIN [Concomitant]
     Active Substance: LEVOTHYROXINE
  3. ERGOCALCIFEROL. [Concomitant]
     Active Substance: ERGOCALCIFEROL
  4. EZETROL [Concomitant]
     Active Substance: EZETIMIBE
  5. SYNTHROID [Concomitant]
     Active Substance: LEVOTHYROXINE SODIUM
  6. ACETAMINOPHEN. [Concomitant]
     Active Substance: ACETAMINOPHEN
  7. NEXIUM [Suspect]
     Active Substance: ESOMEPRAZOLE MAGNESIUM
     Route: 048
  8. DOMPERIDONE [Suspect]
     Active Substance: DOMPERIDONE
     Route: 065
  9. APO-HYDRO [Concomitant]
     Active Substance: HYDROCHLOROTHIAZIDE
  10. RITUXAN [Suspect]
     Active Substance: RITUXIMAB
     Route: 065
  11. ATACAND [Concomitant]
     Active Substance: CANDESARTAN CILEXETIL
  12. JANUVIA [Concomitant]
     Active Substance: SITAGLIPTIN PHOSPHATE
  13. DEPO-MEDROL [Suspect]
     Active Substance: METHYLPREDNISOLONE ACETATE
     Route: 065
  14. LISINOPRIL. [Concomitant]
     Active Substance: LISINOPRIL
  15. METHYLPREDNISOLONE NOS [Concomitant]
     Active Substance: METHYLPREDNISOLONE OR METHYLPREDNISOLONE ACETATE
  16. LANTUS [Suspect]
     Active Substance: INSULIN GLARGINE
     Route: 065
  17. LYRICA [Suspect]
     Active Substance: PREGABALIN
     Route: 065
  18. DIPHENHYDRAMINE [Concomitant]
     Active Substance: DIPHENHYDRAMINE
  19. NORVASC [Concomitant]
     Active Substance: AMLODIPINE BESYLATE
  20. PREDNISONE. [Concomitant]
     Active Substance: PREDNISONE
  21. DIAMICRON [Suspect]
     Active Substance: GLICLAZIDE
     Route: 065
  22. ALTACE [Concomitant]
     Active Substance: RAMIPRIL

REACTIONS (3)
  - Arthritis [Unknown]
  - Condition aggravated [Unknown]
  - Coronary artery occlusion [Unknown]
